FAERS Safety Report 23472731 (Version 1)
Quarter: 2024Q1

REPORT INFORMATION
  Report Type: Spontaneous
  Country: US (occurrence: US)
  Receive Date: 20240202
  Receipt Date: 20240202
  Transmission Date: 20240409
  Serious: No
  Sender: FDA-Public Use
  Company Number: US-ABBVIE-5621136

PATIENT
  Sex: Female
  Weight: 65 kg

DRUGS (1)
  1. CYCLOSPORINE [Suspect]
     Active Substance: CYCLOSPORINE
     Indication: Product used for unknown indication
     Dosage: 0.05% UNIT DOSE
     Route: 047

REACTIONS (2)
  - Dry eye [Unknown]
  - Eye irritation [Unknown]
